FAERS Safety Report 13572497 (Version 9)
Quarter: 2018Q1

REPORT INFORMATION
  Report Type: Report from Study
  Country: CA (occurrence: CA)
  Receive Date: 20170523
  Receipt Date: 20180130
  Transmission Date: 20180508
  Serious: Yes (Hospitalization, Other)
  Sender: FDA-Public Use
  Company Number: CA-GLAXOSMITHKLINE-CA2017GSK075492

PATIENT
  Age: 55 Year
  Sex: Female

DRUGS (6)
  1. ZENHALE [Suspect]
     Active Substance: FORMOTEROL FUMARATE\MOMETASONE FUROATE
     Indication: PRODUCT USED FOR UNKNOWN INDICATION
     Dosage: 2 PUFF(S), BID
  2. MEPOLIZUMAB [Suspect]
     Active Substance: MEPOLIZUMAB
     Indication: ASTHMA
     Dosage: 100 MG, Z MONTHLY
     Route: 042
     Dates: start: 201610
  3. MEPOLIZUMAB [Suspect]
     Active Substance: MEPOLIZUMAB
     Dosage: 100 MG, Z
     Route: 042
     Dates: start: 20170712
  4. MEPOLIZUMAB [Suspect]
     Active Substance: MEPOLIZUMAB
     Dosage: 100 MG, Z
     Route: 042
  5. SPIRIVA RESPIMAT [Suspect]
     Active Substance: TIOTROPIUM BROMIDE
     Indication: PRODUCT USED FOR UNKNOWN INDICATION
     Dosage: UNK
  6. MEPOLIZUMAB [Suspect]
     Active Substance: MEPOLIZUMAB
     Dosage: 100 MG, Z
     Route: 042
     Dates: start: 20170809

REACTIONS (20)
  - Gastrointestinal disorder [Unknown]
  - Rectal haemorrhage [Unknown]
  - Pelvic floor repair [Recovering/Resolving]
  - Pallor [Unknown]
  - Drug dose omission [Unknown]
  - Abdominal pain upper [Unknown]
  - Abdominal pain [Recovering/Resolving]
  - Pain [Unknown]
  - Sepsis [Unknown]
  - Anaemia [Unknown]
  - Diverticulitis [Unknown]
  - Peritonitis [Recovered/Resolved]
  - Vaginal operation [Recovering/Resolving]
  - Lid sulcus deepened [Unknown]
  - Intestinal operation [Recovered/Resolved]
  - Back injury [Unknown]
  - Thrombosis [Not Recovered/Not Resolved]
  - Renal impairment [Unknown]
  - Deep vein thrombosis [Unknown]
  - Cystitis [Recovering/Resolving]

NARRATIVE: CASE EVENT DATE: 20170830
